FAERS Safety Report 17150200 (Version 3)
Quarter: 2020Q1

REPORT INFORMATION
  Report Type: Report from Study
  Country: US (occurrence: US)
  Receive Date: 20191213
  Receipt Date: 20200122
  Transmission Date: 20200409
  Serious: Yes (Hospitalization)
  Sender: FDA-Public Use
  Company Number: US-ROCHE-2493199

PATIENT
  Age: 67 Year
  Sex: Male
  Weight: 122.1 kg

DRUGS (14)
  1. VENETOCLAX. [Suspect]
     Active Substance: VENETOCLAX
     Indication: CHRONIC LYMPHOCYTIC LEUKAEMIA
     Dosage: 20 MG PO QD DAYS 1-7 CYCLE 3?50 MG PO QD DAYS 8-14, CYCLE 3?100 MG PO QD DAYS 15-21, CYCLE 3?200 MG
     Route: 048
     Dates: start: 20190415
  2. VENETOCLAX. [Suspect]
     Active Substance: VENETOCLAX
     Route: 048
     Dates: start: 20191002, end: 20191023
  3. BENZOYL PEROXIDE. [Concomitant]
     Active Substance: BENZOYL PEROXIDE
  4. TRIAMCINOLONE ACETONIDE. [Concomitant]
     Active Substance: TRIAMCINOLONE ACETONIDE
  5. AZELAIC ACID. [Concomitant]
     Active Substance: AZELAIC ACID
  6. OBINUTUZUMAB. [Suspect]
     Active Substance: OBINUTUZUMAB
     Indication: CHRONIC LYMPHOCYTIC LEUKAEMIA
     Dosage: 100 MG IV ON DAY 1, CYCLE 1?900 MG IV ON DAY 2, CYCLE 1?1000 MG IV ON DAY 8, CYCLE 1?1000 MG IV ON D
     Route: 042
     Dates: start: 20190415
  7. VENETOCLAX. [Suspect]
     Active Substance: VENETOCLAX
     Route: 048
     Dates: start: 20191203
  8. FUROSEMIDE. [Concomitant]
     Active Substance: FUROSEMIDE
  9. IBRUTINIB [Suspect]
     Active Substance: IBRUTINIB
     Indication: CHRONIC LYMPHOCYTIC LEUKAEMIA
     Dosage: 1-28, CYCLES 1-19?ON 02/SEP/2019, HE RECEIVED LAST DOSE OF ORAL IBRUTINIB PRIOR TO THE ONSET OF ADVE
     Route: 048
     Dates: start: 20190415
  10. LISINOPRIL. [Concomitant]
     Active Substance: LISINOPRIL
  11. ACYCLOVIR [ACICLOVIR] [Concomitant]
     Active Substance: ACYCLOVIR
  12. CLINDAMYCIN. [Concomitant]
     Active Substance: CLINDAMYCIN
  13. IVERMECTIN. [Concomitant]
     Active Substance: IVERMECTIN
  14. METRONIDAZOLE. [Concomitant]
     Active Substance: METRONIDAZOLE

REACTIONS (3)
  - Ascites [Unknown]
  - Generalised oedema [Recovered/Resolved]
  - Portal hypertension [Unknown]

NARRATIVE: CASE EVENT DATE: 20190903
